FAERS Safety Report 9720823 (Version 2)
Quarter: 2013Q4

REPORT INFORMATION
  Report Type: Spontaneous
  Country: AU (occurrence: AU)
  Receive Date: 20131129
  Receipt Date: 20131206
  Transmission Date: 20140711
  Serious: Yes (Life-Threatening)
  Sender: FDA-Public Use
  Company Number: AU-UCBSA-104471

PATIENT
  Age: 17 Year
  Sex: Female

DRUGS (10)
  1. VIMPAT [Suspect]
     Dosage: DAILY DOSE: 400 MG
     Route: 042
     Dates: start: 20130506
  2. LEVETIRACETAM [Suspect]
     Dosage: DAILY DOSE: 2 G
     Route: 042
     Dates: start: 20130425
  3. PHENOBARBITONE [Suspect]
     Dosage: DAILY DOSE: 180 MG
     Route: 042
     Dates: start: 20130501
  4. SODIUM VALPROATE [Suspect]
     Dosage: DAILY DOSE: 1500 MG
     Route: 042
     Dates: start: 20130429
  5. HEPARIN [Concomitant]
  6. HYDROCORTISONE [Concomitant]
  7. LACTULOSE [Concomitant]
  8. PANTOPRAZOLE [Concomitant]
  9. DOCUSATE SODIUM\SENNOSIDES [Concomitant]
  10. MOVICOL [Concomitant]

REACTIONS (4)
  - Liver disorder [Not Recovered/Not Resolved]
  - Pancytopenia [Not Recovered/Not Resolved]
  - Rash generalised [Not Recovered/Not Resolved]
  - Renal impairment [Not Recovered/Not Resolved]
